FAERS Safety Report 9225029 (Version 1)
Quarter: 2013Q2

REPORT INFORMATION
  Report Type: Spontaneous
  Country: US (occurrence: US)
  Receive Date: 20130411
  Receipt Date: 20130411
  Transmission Date: 20140414
  Serious: Yes (Hospitalization)
  Sender: FDA-Public Use
  Company Number: US-NOVOPROD-374940

PATIENT
  Age: 64 Year
  Sex: Female
  Weight: 86.17 kg

DRUGS (1)
  1. NOVOLOG FLEXPEN [Suspect]
     Indication: DIABETES MELLITUS
     Dosage: SLIDING SCALE, THREE TIMES A DAY
     Route: 058

REACTIONS (4)
  - Myocardial infarction [Recovered/Resolved]
  - Hypoglycaemic unconsciousness [Recovered/Resolved]
  - Device malfunction [Not Recovered/Not Resolved]
  - Blood glucose fluctuation [Recovered/Resolved]
